FAERS Safety Report 11393344 (Version 2)
Quarter: 2015Q3

REPORT INFORMATION
  Report Type: Spontaneous
  Country: US (occurrence: US)
  Receive Date: 20150818
  Receipt Date: 20150902
  Transmission Date: 20151125
  Serious: No
  Sender: FDA-Public Use
  Company Number: US-LUNDBECK-DKLU2000681

PATIENT
  Age: 57 Year
  Sex: Male

DRUGS (4)
  1. NORTHERA [Suspect]
     Active Substance: DROXIDOPA
     Indication: PRODUCT USED FOR UNKNOWN INDICATION
     Route: 065
     Dates: start: 20150616
  2. NORTHERA [Suspect]
     Active Substance: DROXIDOPA
     Dates: end: 20150812
  3. NORTHERA [Suspect]
     Active Substance: DROXIDOPA
     Dates: end: 20150812
  4. NORTHERA [Suspect]
     Active Substance: DROXIDOPA
     Route: 065

REACTIONS (5)
  - Hyperhidrosis [Unknown]
  - Dizziness [Recovering/Resolving]
  - Anxiety [Unknown]
  - Heart rate irregular [Unknown]
  - Blood pressure increased [Unknown]

NARRATIVE: CASE EVENT DATE: 20150617
